FAERS Safety Report 5948162-9 (Version None)
Quarter: 2008Q4

REPORT INFORMATION
  Report Type: 
  Country: None (occurrence: None)
  Receive Date: 20081111
  Receipt Date: 20081106
  Transmission Date: 20090506
  Serious: Yes (Hospitalization)
  Sender: FDA-Public Use
  Company Number: US-BAYER-200814093BCC

PATIENT
  Age: 76 Year
  Sex: Female
  Weight: 79 kg

DRUGS (17)
  1. ALEVE [Suspect]
     Indication: ARTHRALGIA
     Dosage: TOTAL DAILY DOSE: 220 MG  UNIT DOSE: 220 MG
     Route: 048
     Dates: start: 20080701, end: 20081015
  2. ALEVE [Suspect]
     Dosage: TOTAL DAILY DOSE: 440 MG  UNIT DOSE: 220 MG
     Route: 048
     Dates: end: 20080701
  3. CARVEDILOL [Concomitant]
  4. FUROSEMIDE [Concomitant]
  5. SPIRONOLACTONE [Concomitant]
  6. AMIODARONE HCL [Concomitant]
  7. AMARYL [Concomitant]
  8. FOLIC ACID [Concomitant]
  9. GENERIC 81 MG ASPIRIN [Concomitant]
  10. LIPITOR [Concomitant]
  11. DETROL [Concomitant]
  12. KLOR-CON [Concomitant]
  13. ZOLOFT [Concomitant]
  14. NITROGLYCERIN [Concomitant]
  15. WARFARIN SODIUM [Concomitant]
  16. COZAAR [Concomitant]
  17. ONE-A-DAY WOMEN'S [Concomitant]

REACTIONS (3)
  - FLUID RETENTION [None]
  - OEDEMA PERIPHERAL [None]
  - POLLAKIURIA [None]
